FAERS Safety Report 9914978 (Version 1)
Quarter: 2014Q1

REPORT INFORMATION
  Report Type: Spontaneous
  Country: JP (occurrence: JP)
  Receive Date: 20140220
  Receipt Date: 20140220
  Transmission Date: 20141002
  Serious: Yes (Disabling)
  Sender: FDA-Public Use
  Company Number: CHPA2014JP002678

PATIENT
  Sex: Female

DRUGS (1)
  1. NICOTINELL TTS [Suspect]
     Dosage: 52.5 MG, ONCE/SINGLE
     Route: 062
     Dates: start: 20140211, end: 20140211

REACTIONS (5)
  - Activities of daily living impaired [Unknown]
  - Frequent bowel movements [Unknown]
  - Dizziness [Unknown]
  - Nausea [Unknown]
  - Incorrect dose administered [Unknown]
